FAERS Safety Report 15317515 (Version 1)
Quarter: 2018Q3

REPORT INFORMATION
  Report Type: Report from Study
  Country: None (occurrence: DE)
  Receive Date: 20180824
  Receipt Date: 20180824
  Transmission Date: 20181010
  Serious: Yes (Hospitalization)
  Sender: FDA-Public Use
  Company Number: DE-ABBVIE-18P-062-2446678-00

PATIENT
  Age: 56 Year
  Sex: Female

DRUGS (16)
  1. ORAL FLUIDS [Concomitant]
     Indication: PROPHYLAXIS
     Route: 048
     Dates: start: 20141220, end: 20141224
  2. ORAL FLUIDS [Concomitant]
     Route: 048
     Dates: start: 20150118, end: 20150121
  3. VOMEX [Concomitant]
     Active Substance: DIMENHYDRINATE
     Indication: PROPHYLAXIS OF NAUSEA AND VOMITING
     Route: 048
     Dates: start: 20150728
  4. VENETOCLAX. [Suspect]
     Active Substance: VENETOCLAX
     Route: 048
     Dates: start: 20150105, end: 20150112
  5. ACICLOVIR [Concomitant]
     Active Substance: ACYCLOVIR
     Indication: ANTIVIRAL PROPHYLAXIS
     Route: 048
     Dates: start: 20141223
  6. VENETOCLAX. [Suspect]
     Active Substance: VENETOCLAX
     Route: 048
     Dates: start: 20150120
  7. ORAL FLUIDS [Concomitant]
     Route: 048
     Dates: start: 20150103, end: 20150106
  8. COTRIMOXAZOL [Concomitant]
     Active Substance: SULFAMETHOXAZOLE\TRIMETHOPRIM
     Indication: INFECTION PROPHYLAXIS
     Dosage: ONLY SATURDAY AND SUNDAY
     Route: 048
     Dates: start: 20141219
  9. VENETOCLAX. [Suspect]
     Active Substance: VENETOCLAX
     Indication: CHRONIC LYMPHOCYTIC LEUKAEMIA
     Route: 048
     Dates: start: 20141222, end: 20141228
  10. ALLOPURINOL. [Concomitant]
     Active Substance: ALLOPURINOL
     Indication: PROPHYLAXIS
     Route: 048
     Dates: start: 20141219
  11. VENETOCLAX. [Suspect]
     Active Substance: VENETOCLAX
     Route: 048
     Dates: start: 20150113, end: 20150119
  12. ORAL FLUIDS [Concomitant]
     Route: 048
     Dates: start: 20141227, end: 20141230
  13. VENETOCLAX. [Suspect]
     Active Substance: VENETOCLAX
     Route: 048
     Dates: start: 20141229, end: 20150104
  14. ORAL FLUIDS [Concomitant]
     Route: 048
     Dates: start: 20150111, end: 20150114
  15. CEFUROXIM [Concomitant]
     Active Substance: CEFUROXIME
     Indication: ERYTHEMA
     Route: 048
     Dates: start: 20180720, end: 20180726
  16. PANTOPRAZOL [Concomitant]
     Active Substance: PANTOPRAZOLE SODIUM
     Indication: NAUSEA
     Route: 048
     Dates: start: 20150129

REACTIONS (1)
  - Impetigo [Recovered/Resolved]

NARRATIVE: CASE EVENT DATE: 20180731
